FAERS Safety Report 17371088 (Version 1)
Quarter: 2020Q1

REPORT INFORMATION
  Report Type: Spontaneous
  Country: ES (occurrence: ES)
  Receive Date: 20200205
  Receipt Date: 20200205
  Transmission Date: 20200409
  Serious: Yes (Other)
  Sender: FDA-Public Use
  Company Number: ES-AUROBINDO-AUR-APL-2020-006491

PATIENT
  Age: 89 Year
  Sex: Female
  Weight: 60 kg

DRUGS (6)
  1. QUETIAPINE. [Suspect]
     Active Substance: QUETIAPINE
     Dosage: DOSE DOUBLED
     Route: 065
  2. DUODOPA [Suspect]
     Active Substance: CARBIDOPA\LEVODOPA
     Indication: PARKINSON^S DISEASE
     Dosage: MAINTAINED TO LOWER THE MORNING DOSE
     Route: 050
     Dates: start: 20191022
  3. QUETIAPINE. [Suspect]
     Active Substance: QUETIAPINE
     Indication: PRODUCT USED FOR UNKNOWN INDICATION
     Dosage: UNK
     Route: 065
  4. ZOLPIDEM [Suspect]
     Active Substance: ZOLPIDEM TARTRATE
     Indication: PRODUCT USED FOR UNKNOWN INDICATION
     Dosage: UNK
     Route: 065
  5. ZOLPIDEM [Suspect]
     Active Substance: ZOLPIDEM TARTRATE
     Dosage: DOSE TRIPLED AT NIGHT
     Route: 065
  6. DUODOPA [Suspect]
     Active Substance: CARBIDOPA\LEVODOPA
     Dosage: CONTINUOUS DOSE INCREASED BY 0.2ML
     Route: 050
     Dates: start: 20191129

REACTIONS (12)
  - Mobility decreased [Unknown]
  - Stoma site hypergranulation [Recovered/Resolved]
  - Incorrect route of product administration [Not Recovered/Not Resolved]
  - Dyskinesia [Unknown]
  - Somnolence [Unknown]
  - Balance disorder [Unknown]
  - Orthostatic hypotension [Recovered/Resolved]
  - Drug ineffective [Unknown]
  - Cardiac failure [Recovering/Resolving]
  - Inappropriate schedule of product administration [Unknown]
  - Freezing phenomenon [Not Recovered/Not Resolved]
  - Blood pressure abnormal [Recovered/Resolved]

NARRATIVE: CASE EVENT DATE: 2019
